FAERS Safety Report 5280324-9 (Version None)
Quarter: 2007Q1

REPORT INFORMATION
  Report Type: 
  Country: None (occurrence: None)
  Receive Date: 20070329
  Receipt Date: 20070319
  Transmission Date: 20070707
  Serious: Yes (Disabling)
  Sender: FDA-Public Use
  Company Number: JP-ELI_LILLY_AND_COMPANY-JP200702004157

PATIENT
  Age: 74 Year
  Sex: Female

DRUGS (3)
  1. ZYPREXA [Suspect]
     Indication: SCHIZOPHRENIA
     Dosage: 10 MG, DAILY (1/D)
     Route: 048
     Dates: start: 20070202, end: 20070214
  2. ABILIFY [Concomitant]
     Dosage: 15 MG, DAILY (1/D)
     Route: 048
     Dates: start: 20070110, end: 20070309
  3. ABILIFY [Concomitant]
     Dosage: 6 MG, UNK
     Route: 048
     Dates: start: 20070310

REACTIONS (2)
  - ELECTROCARDIOGRAM QT PROLONGED [None]
  - MYOCARDIAL ISCHAEMIA [None]
